FAERS Safety Report 9869657 (Version 1)
Quarter: 2014Q1

REPORT INFORMATION
  Report Type: Other
  Country: DE (occurrence: ES)
  Receive Date: 20140205
  Receipt Date: 20140205
  Transmission Date: 20141002
  Serious: Yes (Other)
  Sender: FDA-Public Use
  Company Number: ES-FRI-1000053352

PATIENT
  Age: 87 Year
  Sex: Female

DRUGS (10)
  1. MEMANTINE [Suspect]
     Indication: DEMENTIA ALZHEIMER^S TYPE
     Dosage: 15 MG
     Route: 048
  2. LEVODOPA/CARBIDOPA [Concomitant]
     Indication: PARKINSON^S DISEASE
     Dosage: 250/25
  3. LEVODOPA/CARBIDOPA [Concomitant]
     Indication: PARKINSON^S DISEASE
     Dosage: 250/25
  4. FUROSEMIDE [Concomitant]
  5. ENALAPRIL [Concomitant]
  6. OMEPRAZOLE [Concomitant]
  7. QUETIAPINE [Concomitant]
  8. TRAZODONE [Concomitant]
  9. FORMOTEROL/BUDESONIDE [Concomitant]
  10. TERBUTALINE [Concomitant]

REACTIONS (1)
  - Pemphigoid [Recovered/Resolved]
